FAERS Safety Report 10380349 (Version 1)
Quarter: 2014Q1

REPORT INFORMATION
  Report Type: Spontaneous
  Country: US (occurrence: None)
  Receive Date: 20140306
  Receipt Date: 20140306
  Transmission Date: 20141002
  Serious: Yes (Other)
  Sender: FDA-Public Use
  Company Number: 163-21880-13070415

PATIENT
  Age: 90 Year
  Sex: Female
  Weight: 89.4 kg

DRUGS (14)
  1. REVLIMID [Suspect]
     Indication: PLASMA CELL MYELOMA
     Dosage: 15 MG, 21 IN 28 D, PO
     Route: 048
     Dates: start: 201301
  2. DEXAMETHASONE [Concomitant]
  3. TRAMADOL HCL (TRAMADOL HYDROCHLORIDE) [Concomitant]
  4. ADVAIR DISKUS [Concomitant]
  5. OMEPRAZOLE [Concomitant]
  6. PROLIA (DENOSUMAB) [Concomitant]
  7. XANAX (ALPRAZOLAM) [Concomitant]
  8. VITAMIN D (ERGOCALCIFEROL) [Concomitant]
  9. METFORMIN HCL (METFORMIN HYDROCHLORIDE) [Concomitant]
  10. TRIAMTERENE/HCTZ (DYAZIDE) [Concomitant]
  11. ZETIA (EZETIMIBE) [Concomitant]
  12. VITAMIN B12 (CYANOCOBALAMIN) [Concomitant]
  13. VITAMIN B6 (PYRIDOXINE HYDROCHLORIDE) [Concomitant]
  14. CHOLESTEROL [Concomitant]

REACTIONS (7)
  - Diarrhoea [None]
  - Dyspnoea [None]
  - Renal impairment [None]
  - Oedema peripheral [None]
  - Muscle spasms [None]
  - Anaemia [None]
  - Throat tightness [None]
